FAERS Safety Report 6297814-2 (Version None)
Quarter: 2009Q3

REPORT INFORMATION
  Report Type: 
  Country: None (occurrence: None)
  Receive Date: 20090804
  Receipt Date: 20090804
  Transmission Date: 20100115
  Serious: Yes (Life-Threatening, Hospitalization)
  Sender: FDA-Public Use
  Company Number: None

PATIENT
  Sex: Male
  Weight: 85.5 kg

DRUGS (1)
  1. VANCOMYCIN [Suspect]
     Indication: PROPHYLAXIS
     Dates: start: 20090709, end: 20090716

REACTIONS (8)
  - APHAGIA [None]
  - BLOOD CREATININE INCREASED [None]
  - BLOOD POTASSIUM INCREASED [None]
  - DEPRESSED LEVEL OF CONSCIOUSNESS [None]
  - DISORIENTATION [None]
  - FATIGUE [None]
  - RENAL DISORDER [None]
  - UNRESPONSIVE TO STIMULI [None]
